FAERS Safety Report 8561347 (Version 6)
Quarter: 2012Q4

REPORT INFORMATION
  Report Type: 
  Country: US (occurrence: US)
  Receive Date: 20120514
  Receipt Date: 20121206
  Transmission Date: 20130627
  Serious: Yes (Hospitalization, Other)
  Sender: FDA-Public Use
  Company Number: US-MERCK-1205USA01905

PATIENT

DRUGS (3)
  1. FOSAMAX [Suspect]
     Indication: OSTEOPENIA
     Dosage: 70 mg, qw
     Route: 048
     Dates: end: 201012
  2. FOSAMAX [Suspect]
     Dosage: 10 mg qd
     Route: 048
     Dates: start: 20031118
  3. CALCIUM (UNSPECIFIED) [Concomitant]
     Dosage: 600 mg, UNK
     Dates: start: 2000

REACTIONS (18)
  - Femur fracture [Unknown]
  - Anaemia [Unknown]
  - Transfusion [Unknown]
  - Dehydration [Unknown]
  - Low turnover osteopathy [Unknown]
  - Vitamin D deficiency [Unknown]
  - Surgery [Unknown]
  - Hypertension [Unknown]
  - Orthostatic hypotension [Unknown]
  - Haemorrhoid operation [Unknown]
  - Fall [Unknown]
  - Underweight [Unknown]
  - Osteoporosis [Unknown]
  - Vascular calcification [Unknown]
  - Weight decreased [Unknown]
  - Vascular calcification [Unknown]
  - Dizziness [Unknown]
  - Oedema peripheral [Unknown]
